FAERS Safety Report 5764615-0 (Version None)
Quarter: 2008Q2

REPORT INFORMATION
  Report Type: 
  Country: None (occurrence: None)
  Receive Date: 20080611
  Receipt Date: 20080604
  Transmission Date: 20081010
  Serious: Yes (Hospitalization, Other)
  Sender: FDA-Public Use
  Company Number: BR-BAYER-200814668LA

PATIENT
  Sex: Male

DRUGS (1)
  1. ADALAT [Suspect]
     Indication: HYPERTENSION
     Route: 048

REACTIONS (3)
  - BLOOD CREATININE INCREASED [None]
  - BLOOD UREA INCREASED [None]
  - RENAL FAILURE [None]
